FAERS Safety Report 23951150 (Version 1)
Quarter: 2024Q2

REPORT INFORMATION
  Report Type: Spontaneous
  Country: IE (occurrence: IE)
  Receive Date: 20240607
  Receipt Date: 20240607
  Transmission Date: 20240715
  Serious: Yes (Life-Threatening, Hospitalization)
  Sender: FDA-Public Use
  Company Number: None

PATIENT
  Age: 75 Year
  Sex: Male

DRUGS (12)
  1. DOXYCYCLINE [Suspect]
     Active Substance: DOXYCYCLINE\DOXYCYCLINE HYCLATE
     Indication: Urinary tract infection
     Dosage: 100MG BD?DOXYCYCLINE TEVA
     Route: 048
     Dates: start: 20240403, end: 20240410
  2. TRIMETHOPRIM [Suspect]
     Active Substance: TRIMETHOPRIM
     Indication: Urinary tract disorder
     Dosage: 200MG AT NIGHT
     Route: 048
  3. DYMISTA [Concomitant]
     Active Substance: AZELASTINE HYDROCHLORIDE\FLUTICASONE PROPIONATE
     Indication: Product used for unknown indication
     Dosage: 1 SPRAY BD? 137MCG/50MCG PER ACTUATION,
     Route: 045
  4. MONTELUKAST [Concomitant]
     Active Substance: MONTELUKAST SODIUM
     Indication: Product used for unknown indication
     Dosage: 10 MG NIGHTLY
     Route: 048
  5. CLARITHROMYCIN [Concomitant]
     Active Substance: CLARITHROMYCIN
     Indication: Product used for unknown indication
     Route: 065
     Dates: start: 20240408, end: 20240410
  6. CLARITHROMYCIN [Concomitant]
     Active Substance: CLARITHROMYCIN
     Indication: Product used for unknown indication
     Dosage: CLARITHROMYCIN (GENERIC)
     Route: 065
     Dates: start: 2023, end: 2023
  7. HYALURONATE SODIUM [Concomitant]
     Active Substance: HYALURONATE SODIUM
     Indication: Product used for unknown indication
     Dosage: 1 DROP, QDS
     Route: 065
  8. Cetirizine dihydrochloride Pinewood [Concomitant]
     Indication: Product used for unknown indication
     Dosage: 10MG OD
     Route: 048
     Dates: start: 20240408
  9. CLARITHROMYCIN [Concomitant]
     Active Substance: CLARITHROMYCIN
     Indication: Product used for unknown indication
     Dosage: 10ML BD?250MG/5ML
     Route: 048
  10. FUROSEMIDE [Concomitant]
     Active Substance: FUROSEMIDE
     Indication: Product used for unknown indication
     Dosage: 40MG OD?FUROSEMIDE (GENERIC) (G)
     Route: 048
  11. INCRUSE ELLIPTA [Concomitant]
     Active Substance: UMECLIDINIUM BROMIDE
     Indication: Product used for unknown indication
     Dosage: 1 PUFF OD
     Route: 065
  12. OMEPRAZOLE [Concomitant]
     Active Substance: DONEPEZIL HYDROCHLORIDE\OMEPRAZOLE\OMEPRAZOLE MAGNESIUM
     Indication: Product used for unknown indication
     Dosage: 20MG OD
     Route: 048

REACTIONS (9)
  - Skin fissures [Recovered/Resolved]
  - Chills [Recovered/Resolved]
  - Dermatitis exfoliative generalised [Recovered/Resolved]
  - Skin wound [Recovered/Resolved]
  - Rash [Recovered/Resolved]
  - Immobile [Recovered/Resolved]
  - Dizziness [Recovered/Resolved]
  - Pain of skin [Recovered/Resolved]
  - Mouth ulceration [Recovered/Resolved]

NARRATIVE: CASE EVENT DATE: 20240404
